FAERS Safety Report 20913734 (Version 1)
Quarter: 2022Q2

REPORT INFORMATION
  Report Type: Spontaneous
  Country: CO (occurrence: CO)
  Receive Date: 20220604
  Receipt Date: 20220604
  Transmission Date: 20220720
  Serious: Yes (Other)
  Sender: FDA-Public Use
  Company Number: CO-AMGEN-COLSP2022087168

PATIENT
  Age: 61 Year
  Sex: Male
  Weight: 51 kg

DRUGS (7)
  1. MVASI [Suspect]
     Active Substance: BEVACIZUMAB-AWWB
     Indication: Adenocarcinoma of colon
     Dosage: 276 MILLIGRAM, QD
     Route: 042
     Dates: start: 20220301
  2. LEUCOVORIN CALCIUM [Concomitant]
     Active Substance: LEUCOVORIN CALCIUM
     Indication: Adenocarcinoma of colon
     Dosage: 664 MILLIGRAM, QD
     Route: 042
     Dates: start: 20220301
  3. FLUOROURACIL [Concomitant]
     Active Substance: FLUOROURACIL
     Indication: Adenocarcinoma of colon
     Dosage: 3864 MILLIGRAM, QD
     Route: 042
     Dates: start: 20220301
  4. OXALIPLATIN [Concomitant]
     Active Substance: OXALIPLATIN
     Indication: Adenocarcinoma of colon
     Dosage: 136.85 MILLIGRAM, QD
     Route: 042
     Dates: start: 20220301
  5. FOSAPREPITANT [Concomitant]
     Active Substance: FOSAPREPITANT
     Indication: Adenocarcinoma of colon
     Dosage: 150 MILLIGRAM, QD
     Route: 042
     Dates: start: 20220301
  6. ONDANSETRON [Concomitant]
     Active Substance: ONDANSETRON
     Indication: Adenocarcinoma of colon
     Dosage: 16 MILLIGRAM, QD
     Route: 042
     Dates: start: 20220301
  7. DEXAMETHASONE PHOSPHATE [Concomitant]
     Active Substance: DEXAMETHASONE PHOSPHATE
     Indication: Adenocarcinoma of colon
     Dosage: 8 MILLIGRAM, QD
     Route: 042
     Dates: start: 20220301

REACTIONS (2)
  - Iron deficiency anaemia [Recovering/Resolving]
  - Proctalgia [Recovering/Resolving]

NARRATIVE: CASE EVENT DATE: 20220509
